FAERS Safety Report 4679331-6 (Version None)
Quarter: 2005Q2

REPORT INFORMATION
  Report Type: 
  Country: None (occurrence: None)
  Receive Date: 20050602
  Receipt Date: 20050405
  Transmission Date: 20051028
  Serious: Yes (Death)
  Sender: FDA-Public Use
  Company Number: US-BRISTOL-MYERS SQUIBB COMPANY-12922886

PATIENT
  Age: 54 Year
  Sex: Female

DRUGS (5)
  1. PARAPLATIN [Suspect]
     Indication: LUNG NEOPLASM MALIGNANT
     Dosage: DOSING: 22NOV + 15DEC04, 05JAN + 26JAN05
     Route: 042
     Dates: start: 20050214, end: 20050214
  2. TAXOTERE [Concomitant]
     Indication: LUNG NEOPLASM MALIGNANT
     Dates: start: 20041101, end: 20050201
  3. RESTORIL [Concomitant]
  4. PHENERGAN [Concomitant]
  5. DECADRON [Concomitant]

REACTIONS (1)
  - MALIGNANT NEOPLASM PROGRESSION [None]
